FAERS Safety Report 8777557 (Version 2)
Quarter: 2012Q4

REPORT INFORMATION
  Report Type: 
  Country: BR (occurrence: BR)
  Receive Date: 20120911
  Receipt Date: 20120914
  Transmission Date: 20130627
  Serious: Yes (Death, Hospitalization)
  Sender: FDA-Public Use
  Company Number: PHHY2012BR078869

PATIENT
  Sex: Female

DRUGS (1)
  1. DIOVAN HCT [Suspect]
     Indication: HYPERTENSION
     Dosage: 1 DF (160/12.5 mg),
     Route: 048

REACTIONS (5)
  - Cardiac failure [Fatal]
  - Cardiogenic shock [Fatal]
  - Mitral valve stenosis [Fatal]
  - Arrhythmia [Fatal]
  - Dyspnoea [Recovering/Resolving]
